FAERS Safety Report 7031979-X (Version None)
Quarter: 2010Q4

REPORT INFORMATION
  Report Type: 
  Country: None (occurrence: None)
  Receive Date: 20101007
  Receipt Date: 20100929
  Transmission Date: 20110411
  Serious: Yes (Other)
  Sender: FDA-Public Use
  Company Number: JP-BAYER-201014455BYL

PATIENT
  Age: 69 Year
  Sex: Female
  Weight: 49 kg

DRUGS (10)
  1. NEXAVAR [Suspect]
     Indication: RENAL CELL CARCINOMA
     Dosage: TOTAL DAILY DOSE: 800 MG  UNIT DOSE: 200 MG
     Route: 048
     Dates: start: 20100712, end: 20100725
  2. NEXAVAR [Suspect]
     Dosage: UNIT DOSE: 200 MG
     Route: 048
     Dates: start: 20100726, end: 20100831
  3. PASTARON [Concomitant]
     Indication: PALMAR-PLANTAR ERYTHRODYSAESTHESIA SYNDROME
     Route: 061
     Dates: start: 20100726
  4. MAGMITT [Concomitant]
     Indication: CONSTIPATION
     Dosage: UNIT DOSE: 500 MG
     Route: 048
     Dates: start: 20100726
  5. LOXOPROFEN SODIUM [Concomitant]
     Indication: BACK PAIN
     Dosage: UNIT DOSE: 60 MG
     Route: 048
     Dates: start: 20100727
  6. ADEFURONIC [Concomitant]
     Indication: BACK PAIN
     Dosage: UNIT DOSE: 25 MG
     Route: 054
     Dates: start: 20100727
  7. DERSONE [Concomitant]
     Indication: STOMATITIS
     Route: 049
     Dates: start: 20100803
  8. AZUNOL GARGLE LIQUID [Concomitant]
     Indication: STOMATITIS
     Route: 049
     Dates: start: 20100803
  9. LOCOID [Concomitant]
     Indication: PALMAR-PLANTAR ERYTHRODYSAESTHESIA SYNDROME
     Route: 061
     Dates: start: 20100803
  10. OIF [Concomitant]
     Indication: RENAL CELL CARCINOMA
     Dosage: TOTAL DAILY DOSE: 5 MIU
     Route: 042
     Dates: start: 20090515, end: 20100711

REACTIONS (1)
  - HEPATIC FUNCTION ABNORMAL [None]
